FAERS Safety Report 5746197-2 (Version None)
Quarter: 2008Q2

REPORT INFORMATION
  Report Type: 
  Country: None (occurrence: None)
  Receive Date: 20080522
  Receipt Date: 20080511
  Transmission Date: 20081010
  Serious: Yes (Hospitalization, Other)
  Sender: FDA-Public Use
  Company Number: BR-ROCHE-564107

PATIENT
  Age: 15 Year
  Sex: Male
  Weight: 60 kg

DRUGS (3)
  1. ROACUTAN [Suspect]
     Indication: ACNE
     Route: 048
     Dates: start: 20080101, end: 20080101
  2. ROACUTAN [Suspect]
     Dosage: DOSE INCREASED.
     Route: 048
     Dates: start: 20080201, end: 20080201
  3. ROACUTAN [Suspect]
     Dosage: DOSE REDUCED.
     Route: 048
     Dates: start: 20080301

REACTIONS (3)
  - CRYING [None]
  - DEPRESSION [None]
  - SUICIDE ATTEMPT [None]
